FAERS Safety Report 5045763-X (Version None)
Quarter: 2006Q2

REPORT INFORMATION
  Report Type: 
  Country: None (occurrence: None)
  Receive Date: 20060601
  Receipt Date: 20060424
  Transmission Date: 20061013
  Serious: No
  Sender: FDA-Public Use
  Company Number: 2006-BP-04638BP

PATIENT
  Age: 60 Year
  Sex: Male

DRUGS (6)
  1. SPIRIVA [Suspect]
     Indication: CHRONIC OBSTRUCTIVE PULMONARY DISEASE
     Dosage: 18 MCG (18 MCG), IH
     Route: 055
     Dates: start: 20030101
  2. ACTONEL [Concomitant]
  3. FLOVENT [Concomitant]
  4. ALBUTEROL SPIROS [Concomitant]
  5. DARVOCET-N 100 [Concomitant]
  6. VITAMIN D [Concomitant]

REACTIONS (1)
  - MUSCLE ATROPHY [None]
